FAERS Safety Report 7643078-4 (Version None)
Quarter: 2011Q3

REPORT INFORMATION
  Report Type: 
  Country: None (occurrence: None)
  Receive Date: 20110728
  Receipt Date: 20110719
  Transmission Date: 20111222
  Serious: Yes (Hospitalization, Other)
  Sender: FDA-Public Use
  Company Number: US-ASTRAZENECA-2011SE36199

PATIENT
  Age: 54 Year
  Sex: Female

DRUGS (10)
  1. METFORMIN HCL [Concomitant]
     Indication: DIABETES MELLITUS
  2. LASIX [Concomitant]
     Indication: OEDEMA
  3. POTASSIUM [Concomitant]
  4. LORTAB [Concomitant]
     Indication: PAIN
  5. SIMVASTATIN [Concomitant]
     Indication: HYPERCHOLESTEROLAEMIA
  6. NEXIUM [Suspect]
     Route: 048
  7. LOVAZA [Concomitant]
     Indication: BLOOD TRIGLYCERIDES
  8. LEVOTHYROXINE SODIUM [Concomitant]
     Indication: THYROID DISORDER
  9. AVINZA [Concomitant]
     Indication: PAIN
  10. NEXIUM [Suspect]
     Route: 048

REACTIONS (9)
  - ROAD TRAFFIC ACCIDENT [None]
  - BARRETT'S OESOPHAGUS [None]
  - UPPER LIMB FRACTURE [None]
  - CARDIAC ASSISTANCE DEVICE USER [None]
  - DYSPHONIA [None]
  - DISABILITY [None]
  - SPINAL FRACTURE [None]
  - OESOPHAGEAL OPERATION [None]
  - INAPPROPRIATE SCHEDULE OF DRUG ADMINISTRATION [None]
